FAERS Safety Report 20610004 (Version 2)
Quarter: 2022Q2

REPORT INFORMATION
  Report Type: Spontaneous
  Country: US (occurrence: US)
  Receive Date: 20220318
  Receipt Date: 20220415
  Transmission Date: 20220721
  Serious: No
  Sender: FDA-Public Use
  Company Number: US-VIIV HEALTHCARE LIMITED-US2022AMR046807

PATIENT
  Age: 56 Year
  Sex: Male

DRUGS (2)
  1. RILPIVIRINE [Suspect]
     Active Substance: RILPIVIRINE
     Indication: HIV infection
     Dosage: UNK 2ML CABOTEGRAVIR/  2ML RILPIVIRINE
     Route: 030
     Dates: start: 20211117, end: 20220315
  2. CABOTEGRAVIR [Suspect]
     Active Substance: CABOTEGRAVIR
     Indication: HIV infection
     Dosage: UNK 2ML CABOTEGRAVIR/ 2ML RILPIVIRINE
     Route: 065
     Dates: start: 20211117, end: 20220315

REACTIONS (3)
  - Arthralgia [Unknown]
  - Swelling [Recovered/Resolved]
  - Nausea [Recovered/Resolved]
